FAERS Safety Report 18892662 (Version 4)
Quarter: 2021Q1

REPORT INFORMATION
  Report Type: Report from Study
  Country: US (occurrence: US)
  Receive Date: 20210215
  Receipt Date: 20210330
  Transmission Date: 20210420
  Serious: Yes (Other)
  Sender: FDA-Public Use
  Company Number: US-GLAXOSMITHKLINE-US2020AMR207740

PATIENT
  Sex: Female

DRUGS (5)
  1. NIRAPARIB [Suspect]
     Active Substance: NIRAPARIB
     Indication: MALIGNANT NEOPLASM OF UTERINE ADNEXA
     Dosage: 100 MG, QD (PM W/O FOOD)
     Dates: start: 20201229
  2. NIRAPARIB [Suspect]
     Active Substance: NIRAPARIB
     Dosage: 100 MG, QD
  3. NIRAPARIB [Suspect]
     Active Substance: NIRAPARIB
     Indication: OVARIAN CANCER
     Dosage: 300 MG
     Dates: start: 20200930, end: 20201006
  4. NIRAPARIB [Suspect]
     Active Substance: NIRAPARIB
     Indication: OVARIAN DISORDER
     Dosage: 200 MG, QD, AT 8PM
     Dates: start: 20201007, end: 20201019
  5. NIRAPARIB [Suspect]
     Active Substance: NIRAPARIB
     Indication: FALLOPIAN TUBE DISORDER
     Dosage: 100 MG, QD (PM W/O FOOD)
     Dates: start: 20201229

REACTIONS (12)
  - Ear haemorrhage [Unknown]
  - Blood pressure increased [Not Recovered/Not Resolved]
  - Osteopenia [Unknown]
  - Thrombocytopenia [Recovered/Resolved]
  - Haematocrit decreased [Unknown]
  - Haemoglobin decreased [Unknown]
  - Blood pressure systolic increased [Unknown]
  - Product use in unapproved indication [Unknown]
  - Internal haemorrhage [Unknown]
  - Palpitations [Recovering/Resolving]
  - Platelet count decreased [Recovered/Resolved]
  - Heart rate increased [Unknown]
